FAERS Safety Report 8331534 (Version 2)
Quarter: 2016Q2

REPORT INFORMATION
  Report Type: Report from Study
  Country: US (occurrence: US)
  Receive Date: 20120111
  Receipt Date: 20160624
  Transmission Date: 20160815
  Serious: Yes (Death, Hospitalization, Other)
  Sender: FDA-Public Use
  Company Number: US-ROCHE-GNE245520

PATIENT
  Age: 50 Year
  Sex: Female
  Weight: 46.75 kg

DRUGS (45)
  1. PREDNISONE. [Suspect]
     Active Substance: PREDNISONE
     Dosage: 60MG X 6 DAYS AND 30MG X 7 DAYS (GIVEN ON DAYS 2 TO 14)
     Route: 048
     Dates: start: 20040517
  2. ERBITUX [Suspect]
     Active Substance: CETUXIMAB
     Indication: TONSIL CANCER
     Route: 065
     Dates: start: 20070807, end: 20070921
  3. ACYCLOVIR. [Concomitant]
     Active Substance: ACYCLOVIR
     Dosage: 400 MG, UNK
     Route: 048
     Dates: start: 200611
  4. FOLIC ACID. [Concomitant]
     Active Substance: FOLIC ACID
     Indication: RHEUMATOID ARTHRITIS
     Route: 065
     Dates: start: 1995
  5. RANITIDINE. [Concomitant]
     Active Substance: RANITIDINE
     Indication: PRODUCT USED FOR UNKNOWN INDICATION
     Route: 065
     Dates: start: 200804, end: 200805
  6. FLUCONAZOLE. [Concomitant]
     Active Substance: FLUCONAZOLE
     Indication: PRODUCT USED FOR UNKNOWN INDICATION
  7. OXYCONTIN [Concomitant]
     Active Substance: OXYCODONE HYDROCHLORIDE
     Route: 065
     Dates: start: 200709
  8. RITUXIMAB [Suspect]
     Active Substance: RITUXIMAB
     Indication: RHEUMATOID ARTHRITIS
     Dosage: GIVEN ON DAYS 1 + 15
     Route: 042
     Dates: start: 200307
  9. PREDNISONE. [Suspect]
     Active Substance: PREDNISONE
     Dosage: 100 MG, DAYS 1+15
     Route: 048
     Dates: start: 20061102
  10. DIFLUCAN [Concomitant]
     Active Substance: FLUCONAZOLE
     Indication: PRODUCT USED FOR UNKNOWN INDICATION
     Route: 065
     Dates: start: 20070201
  11. VIGAMOX [Concomitant]
     Active Substance: MOXIFLOXACIN HYDROCHLORIDE
     Route: 065
     Dates: start: 20060215
  12. DOXYCYCLINE. [Concomitant]
     Active Substance: DOXYCYCLINE
     Indication: ANTIVIRAL PROPHYLAXIS
     Route: 065
     Dates: start: 200501
  13. SYNTHROID [Concomitant]
     Active Substance: LEVOTHYROXINE SODIUM
     Indication: PRODUCT USED FOR UNKNOWN INDICATION
     Route: 065
     Dates: start: 1995
  14. INVANZ [Concomitant]
     Active Substance: ERTAPENEM SODIUM
     Indication: PRODUCT USED FOR UNKNOWN INDICATION
  15. METHYLPREDNISOLONE. [Suspect]
     Active Substance: METHYLPREDNISOLONE
     Dosage: 100 MG, DAYS 1+15
     Route: 042
     Dates: start: 20061102
  16. VIGAMOX [Concomitant]
     Active Substance: MOXIFLOXACIN HYDROCHLORIDE
     Indication: PRODUCT USED FOR UNKNOWN INDICATION
     Route: 065
     Dates: start: 200501
  17. LOTRISONE [Concomitant]
     Active Substance: BETAMETHASONE DIPROPIONATE\CLOTRIMAZOLE
     Indication: PRODUCT USED FOR UNKNOWN INDICATION
  18. TYLENOL [Concomitant]
     Active Substance: ACETAMINOPHEN
  19. RITUXIMAB [Suspect]
     Active Substance: RITUXIMAB
     Dosage: GIVEN ON DAYS 1 + 15
     Route: 042
     Dates: start: 20040316
  20. METHOTREXATE [Concomitant]
     Active Substance: METHOTREXATE
     Route: 065
     Dates: start: 20050221
  21. CLINDAMYCIN [Concomitant]
     Active Substance: CLINDAMYCIN\CLINDAMYCIN PHOSPHATE
     Indication: PRODUCT USED FOR UNKNOWN INDICATION
  22. LOVENOX [Concomitant]
     Active Substance: ENOXAPARIN SODIUM
     Indication: THROMBOSIS PROPHYLAXIS
     Route: 065
     Dates: start: 20060424
  23. RITUXIMAB [Suspect]
     Active Substance: RITUXIMAB
     Dosage: GIVEN ON DAYS 1 + 15
     Route: 042
     Dates: start: 20041220
  24. METHYLPREDNISOLONE. [Suspect]
     Active Substance: METHYLPREDNISOLONE
     Indication: RHEUMATOID ARTHRITIS
     Dosage: GIVEN ON DAYS 1 + 15
     Route: 042
     Dates: start: 200307
  25. PREDNISONE. [Suspect]
     Active Substance: PREDNISONE
     Dosage: GIVEN ON DAYS 2-14
     Route: 048
     Dates: start: 200307
  26. PREDNISONE. [Suspect]
     Active Substance: PREDNISONE
     Dosage: UNK TABLET, DAYS 2-14
     Route: 048
     Dates: start: 20060121
  27. ACYCLOVIR. [Concomitant]
     Active Substance: ACYCLOVIR
     Indication: PRODUCT USED FOR UNKNOWN INDICATION
     Route: 048
     Dates: start: 200503
  28. ESTRATEST [Concomitant]
     Active Substance: ESTROGENS, ESTERIFIED\METHYLTESTOSTERONE
     Indication: PRODUCT USED FOR UNKNOWN INDICATION
     Route: 065
     Dates: start: 1989
  29. DARVOCET [Concomitant]
     Active Substance: ACETAMINOPHEN\PROPOXYPHENE HYDROCHLORIDE
     Indication: RHEUMATOID ARTHRITIS
  30. PROVIGIL [Concomitant]
     Active Substance: MODAFINIL
     Indication: PRODUCT USED FOR UNKNOWN INDICATION
  31. METHOTREXATE [Concomitant]
     Active Substance: METHOTREXATE
     Indication: RHEUMATOID ARTHRITIS
     Route: 065
     Dates: start: 2000, end: 20050214
  32. DECADRON [Concomitant]
     Active Substance: DEXAMETHASONE
     Route: 065
     Dates: start: 200708, end: 200711
  33. RITUXIMAB [Suspect]
     Active Substance: RITUXIMAB
     Dosage: GIVEN ON DAYS 1 + 15
     Route: 042
     Dates: start: 20030907, end: 20031009
  34. RITUXIMAB [Suspect]
     Active Substance: RITUXIMAB
     Dosage: GIVEN ON DAYS 1 + 15
     Route: 042
     Dates: start: 20061102
  35. CARBOPLATIN. [Suspect]
     Active Substance: CARBOPLATIN
     Indication: TONSIL CANCER
     Route: 065
     Dates: start: 20070807, end: 20070921
  36. DOXYCYCLINE. [Concomitant]
     Active Substance: DOXYCYCLINE
     Route: 065
     Dates: start: 20050322
  37. FOLIC ACID. [Concomitant]
     Active Substance: FOLIC ACID
     Route: 065
     Dates: start: 20040212
  38. CYMBALTA [Concomitant]
     Active Substance: DULOXETINE HYDROCHLORIDE
     Indication: PRODUCT USED FOR UNKNOWN INDICATION
  39. LEVOTHYROXINE. [Concomitant]
     Active Substance: LEVOTHYROXINE
     Indication: PRODUCT USED FOR UNKNOWN INDICATION
  40. LODINE [Concomitant]
     Active Substance: ETODOLAC
     Indication: PRODUCT USED FOR UNKNOWN INDICATION
  41. REGLAN [Concomitant]
     Active Substance: METOCLOPRAMIDE HYDROCHLORIDE
     Route: 065
     Dates: start: 200804, end: 200805
  42. NEXIUM [Concomitant]
     Active Substance: ESOMEPRAZOLE MAGNESIUM
     Route: 065
     Dates: start: 20080208, end: 200804
  43. LEVAQUIN [Concomitant]
     Active Substance: LEVOFLOXACIN
  44. METHYLPREDNISOLONE. [Suspect]
     Active Substance: METHYLPREDNISOLONE
     Dosage: GIVEN ON DAYS 1 + 15
     Route: 042
     Dates: start: 20040316
  45. PREDNISONE. [Suspect]
     Active Substance: PREDNISONE
     Indication: RHEUMATOID ARTHRITIS
     Route: 048
     Dates: start: 1995

REACTIONS (11)
  - Catheter site infection [Recovered/Resolved]
  - Bacteraemia [Recovered/Resolved]
  - Staphylococcal infection [Recovered/Resolved]
  - Dysphagia [Recovered/Resolved with Sequelae]
  - Progressive multifocal leukoencephalopathy [Fatal]
  - Oropharyngeal squamous cell carcinoma [Not Recovered/Not Resolved]
  - Acute sinusitis [Not Recovered/Not Resolved]
  - Pyrexia [Recovered/Resolved]
  - Venous thrombosis limb [Not Recovered/Not Resolved]
  - Pharyngeal inflammation [Recovered/Resolved]
  - Pneumonia bacterial [Recovered/Resolved]

NARRATIVE: CASE EVENT DATE: 20070621
